FAERS Safety Report 8854993 (Version 3)
Quarter: 2012Q4

REPORT INFORMATION
  Report Type: 
  Country: JP (occurrence: JP)
  Receive Date: 20121023
  Receipt Date: 20121107
  Transmission Date: 20130627
  Serious: Yes (Other)
  Sender: FDA-Public Use
  Company Number: JP-ASTELLAS-2012JP009746

PATIENT
  Age: 79 Year
  Sex: Female

DRUGS (4)
  1. VESICARE [Suspect]
     Dosage: 5 mg, Unknown/D
     Route: 048
  2. GRAMALIL [Suspect]
     Indication: PARKINSON^S DISEASE
     Dosage: 25 mg, Unknown/D
     Route: 048
  3. LECICARBON [Suspect]
     Dosage: UNK
     Route: 054
  4. SENNA EXTRACT [Concomitant]
     Dosage: UNK
     Route: 048

REACTIONS (1)
  - Hypokalaemia [Recovered/Resolved]
